FAERS Safety Report 8859522 (Version 3)
Quarter: 2013Q3

REPORT INFORMATION
  Report Type: Report from Study
  Country: PL (occurrence: PL)
  Receive Date: 20121024
  Receipt Date: 20130719
  Transmission Date: 20140515
  Serious: Yes (Hospitalization, Other)
  Sender: FDA-Public Use
  Company Number: PL-BRISTOL-MYERS SQUIBB COMPANY-17045154

PATIENT
  Age: 66 Year
  Sex: Female

DRUGS (5)
  1. SAXAGLIPTIN [Suspect]
     Indication: TYPE 2 DIABETES MELLITUS
     Dates: start: 20100927
  2. METFORMAX [Suspect]
     Indication: TYPE 2 DIABETES MELLITUS
  3. NOVOMIX [Suspect]
     Indication: TYPE 2 DIABETES MELLITUS
     Dosage: FORMULATION-NOVOMIX30
  4. ALEVE [Suspect]
  5. ASPIRIN [Concomitant]

REACTIONS (1)
  - Angioedema [Recovered/Resolved]
